FAERS Safety Report 8558003-1 (Version None)
Quarter: 2012Q3

REPORT INFORMATION
  Report Type: 
  Country: None (occurrence: None)
  Receive Date: 20120801
  Receipt Date: 20120724
  Transmission Date: 20120928
  Serious: Yes (Hospitalization)
  Sender: FDA-Public Use
  Company Number: DE-JNJFOC-20120707576

PATIENT
  Age: 39 Year
  Sex: Female
  Weight: 42 kg

DRUGS (3)
  1. REMICADE [Suspect]
     Dosage: 10-APR (ASSUMABLY 2012)
     Route: 042
  2. REMICADE [Suspect]
     Dosage: 22-MAY (ASSUMABLY 2012)
     Route: 042
  3. REMICADE [Suspect]
     Indication: CROHN'S DISEASE
     Dosage: 24-APR (ASSUMABLY 2012)
     Route: 042

REACTIONS (9)
  - DIARRHOEA [None]
  - JEJUNAL STENOSIS [None]
  - VOMITING [None]
  - CONDITION AGGRAVATED [None]
  - CACHEXIA [None]
  - GENERALISED OEDEMA [None]
  - WEIGHT DECREASED [None]
  - MALNUTRITION [None]
  - DRUG SPECIFIC ANTIBODY PRESENT [None]
